FAERS Safety Report 8022817-7 (Version None)
Quarter: 2012Q1

REPORT INFORMATION
  Report Type: 
  Country: None (occurrence: None)
  Receive Date: 20120104
  Receipt Date: 20111228
  Transmission Date: 20120608
  Serious: Yes (Hospitalization, Disabling)
  Sender: FDA-Public Use
  Company Number: US-MERCK-1106USA01826

PATIENT
  Age: 64 Year
  Sex: Female

DRUGS (11)
  1. BONIVA [Concomitant]
     Indication: OSTEOPOROSIS PROPHYLAXIS
     Route: 048
     Dates: start: 20070606, end: 20080401
  2. RECLAST [Concomitant]
     Indication: OSTEOPOROSIS
     Route: 041
     Dates: start: 20080422, end: 20090427
  3. DIDRONEL [Concomitant]
     Indication: OSTEOPOROSIS PROPHYLAXIS
     Route: 065
  4. FOSAMAX [Suspect]
     Indication: OSTEOPOROSIS PROPHYLAXIS
     Route: 048
     Dates: start: 19980101, end: 20070823
  5. BONIVA [Concomitant]
     Indication: OSTEOPOROSIS
     Route: 048
     Dates: start: 20070606, end: 20080401
  6. RECLAST [Concomitant]
     Indication: OSTEOPOROSIS PROPHYLAXIS
     Route: 041
     Dates: start: 20080422, end: 20090427
  7. FOSAMAX [Suspect]
     Route: 048
     Dates: start: 20050301, end: 20070601
  8. FOSAMAX [Suspect]
     Route: 048
     Dates: start: 19980101, end: 20050301
  9. FOSAMAX [Suspect]
     Indication: OSTEOPOROSIS
     Route: 048
     Dates: start: 19980101, end: 20070823
  10. FOSAMAX [Suspect]
     Route: 048
     Dates: start: 19980101, end: 20050301
  11. FOSAMAX [Suspect]
     Route: 048
     Dates: start: 20050301, end: 20070601

REACTIONS (10)
  - GASTROINTESTINAL STROMAL TUMOUR [None]
  - MIGRAINE [None]
  - FRACTURE DELAYED UNION [None]
  - FEMUR FRACTURE [None]
  - TENDON DISORDER [None]
  - HYPERTENSION [None]
  - MYOFASCIAL PAIN SYNDROME [None]
  - BACK PAIN [None]
  - FOOT FRACTURE [None]
  - WEIGHT INCREASED [None]
